FAERS Safety Report 11611519 (Version 1)
Quarter: 2015Q4

REPORT INFORMATION
  Report Type: Spontaneous
  Country: PL (occurrence: PL)
  Receive Date: 20151008
  Receipt Date: 20151008
  Transmission Date: 20160304
  Serious: Yes (Other)
  Sender: FDA-Public Use
  Company Number: PL-TEVA-598037ACC

PATIENT
  Age: 66 Year
  Sex: Male
  Weight: 100 kg

DRUGS (2)
  1. ETOPOSID [Suspect]
     Active Substance: ETOPOSIDE
     Indication: LUNG NEOPLASM MALIGNANT
     Dosage: DOSE: 215.89 UNIT: UNSPECIFIED
     Route: 042
     Dates: start: 20150615, end: 20150617
  2. CISPLATIN TEVA [Suspect]
     Active Substance: CISPLATIN
     Indication: LUNG NEOPLASM MALIGNANT
     Dosage: DOSE: 53.97; DOSE UNIT: UNSPECIFIED
     Route: 042
     Dates: start: 20150615, end: 20150617

REACTIONS (5)
  - Hyperkalaemia [Unknown]
  - Renal failure [Unknown]
  - Neutropenia [Unknown]
  - Nausea [Unknown]
  - Vomiting [Unknown]

NARRATIVE: CASE EVENT DATE: 20150704
